FAERS Safety Report 5551427-6 (Version None)
Quarter: 2007Q4

REPORT INFORMATION
  Report Type: 
  Country: None (occurrence: None)
  Receive Date: 20071128
  Receipt Date: 20070808
  Transmission Date: 20080405
  Serious: Yes (Other)
  Sender: FDA-Public Use
  Company Number: 2007035329

PATIENT
  Age: 54 Year
  Sex: 0
  Weight: 97.977 kg

DRUGS (2)
  1. LIPITOR [Suspect]
     Indication: ACUTE MYOCARDIAL INFARCTION
     Dosage: 10 MG, 1 IN 1 D
  2. LIPITOR [Suspect]
     Indication: CORONARY ARTERY DISEASE
     Dosage: 10 MG, 1 IN 1 D

REACTIONS (1)
  - HIGH DENSITY LIPOPROTEIN DECREASED [None]
